FAERS Safety Report 19694495 (Version 1)
Quarter: 2021Q3

REPORT INFORMATION
  Report Type: Spontaneous
  Country: US (occurrence: US)
  Receive Date: 20210813
  Receipt Date: 20210813
  Transmission Date: 20211014
  Serious: Yes (Death, Hospitalization, Other)
  Sender: FDA-Public Use
  Company Number: US-CIPLA LTD.-2021US05453

PATIENT

DRUGS (2)
  1. OXCARBAZEPINE. [Suspect]
     Active Substance: OXCARBAZEPINE
     Indication: PRODUCT USED FOR UNKNOWN INDICATION
     Dosage: UNK
     Route: 048
  2. BUPROPION HYDROCHLORIDE XL [Suspect]
     Active Substance: BUPROPION HYDROCHLORIDE
     Indication: PRODUCT USED FOR UNKNOWN INDICATION
     Dosage: 200 TABLETS
     Route: 048

REACTIONS (8)
  - Cardiogenic shock [Unknown]
  - Metabolic acidosis [Unknown]
  - Seizure [Unknown]
  - Intentional overdose [Unknown]
  - Ventricular fibrillation [Fatal]
  - Toxicity to various agents [Unknown]
  - Cardiac arrest [Fatal]
  - Cardiopulmonary failure [Fatal]
